FAERS Safety Report 19054854 (Version 1)
Quarter: 2021Q1

REPORT INFORMATION
  Report Type: Report from Study
  Country: None (occurrence: CO)
  Receive Date: 20210325
  Receipt Date: 20210325
  Transmission Date: 20210420
  Serious: Yes (Other)
  Sender: FDA-Public Use
  Company Number: CO-ABBVIE-21K-036-3829053-00

PATIENT
  Sex: Male

DRUGS (2)
  1. HUMIRA [Suspect]
     Active Substance: ADALIMUMAB
     Indication: PSORIASIS
     Route: 058
     Dates: end: 20210206
  2. HUMIRA [Suspect]
     Active Substance: ADALIMUMAB
     Indication: PSORIASIS
     Route: 058
     Dates: start: 20100406

REACTIONS (6)
  - Pain [Recovering/Resolving]
  - Systemic scleroderma [Recovering/Resolving]
  - Inflammation [Recovering/Resolving]
  - Dermatitis psoriasiform [Recovering/Resolving]
  - Laryngitis [Recovering/Resolving]
  - Coronavirus infection [Recovering/Resolving]
